FAERS Safety Report 6488078-5 (Version None)
Quarter: 2009Q4

REPORT INFORMATION
  Report Type: 
  Country: None (occurrence: None)
  Receive Date: 20091210
  Receipt Date: 20091130
  Transmission Date: 20100525
  Serious: Yes (Death)
  Sender: FDA-Public Use
  Company Number: JP-PFIZER INC-2009253018

PATIENT
  Age: 24 Year
  Sex: Male
  Weight: 50 kg

DRUGS (14)
  1. ZITHROMAC SR [Suspect]
     Indication: PHARYNGITIS
     Dosage: 2 G, SINGLE
     Route: 048
     Dates: start: 20090731, end: 20090731
  2. LOXOPROFEN SODIUM [Suspect]
     Indication: PHARYNGITIS
     Dosage: 60 MG AS NEEDED
     Route: 048
     Dates: start: 20090729, end: 20090801
  3. PL GRAN. [Suspect]
     Indication: PHARYNGITIS
     Dosage: FREQUENCY: 4X/DAY,
     Route: 048
     Dates: start: 20090731, end: 20090801
  4. DEPAKENE [Suspect]
     Indication: EPILEPSY
     Dosage: 1000 MG/DAY 3X/DAY
     Route: 048
     Dates: end: 20090731
  5. TEGRETOL [Suspect]
     Indication: EPILEPSY
     Dosage: 900 MG/DAY 3X/DAY
     Route: 048
     Dates: end: 20090731
  6. EXCEGRAN [Suspect]
     Indication: EPILEPSY
     Dosage: 300 MG/DAY 3X/DAY
     Route: 048
     Dates: end: 20090731
  7. ARTANE [Suspect]
     Indication: EPILEPSY
     Dosage: 6 MG/DAY 3X/DAY
     Route: 048
     Dates: end: 20090731
  8. SERENACE [Suspect]
     Indication: AUTISM
     Dosage: 18 MG/DAY 3X/DAY
     Route: 048
     Dates: end: 20090731
  9. HIRNAMIN [Suspect]
     Indication: AUTISM
     Dosage: 350 MG/DAY 4X/DAY
     Route: 048
     Dates: end: 20090731
  10. TRYPTANOL [Suspect]
     Indication: AUTISM
     Dosage: 25 MG/DAY ONCE DAILY
     Route: 048
     Dates: end: 20090731
  11. BENZALIN [Suspect]
     Indication: AUTISM
     Dosage: 20 MG/DAY ONCE DAILY
     Route: 048
     Dates: end: 20090731
  12. MAGNESIUM OXIDE [Suspect]
     Indication: CONSTIPATION
     Dosage: 1980 MG/DAY 3X/DAY
     Route: 048
     Dates: end: 20090731
  13. ALLEGRA [Concomitant]
     Route: 048
     Dates: start: 20080201, end: 20090728
  14. LAXOBERON [Concomitant]
     Dosage: UNK
     Route: 048
     Dates: start: 20010101, end: 20090731

REACTIONS (1)
  - CARDIAC FAILURE ACUTE [None]
